FAERS Safety Report 6180421-X (Version None)
Quarter: 2009Q2

REPORT INFORMATION
  Report Type: 
  Country: None (occurrence: None)
  Receive Date: 20090506
  Receipt Date: 20090429
  Transmission Date: 20091009
  Serious: Yes (Other)
  Sender: FDA-Public Use
  Company Number: US-JNJFOC-20090500005

PATIENT
  Sex: Female
  Weight: 46.72 kg

DRUGS (9)
  1. FENTANYL TRANSDERMAL SYSTEM [Suspect]
     Indication: MUSCULOSKELETAL PAIN
     Route: 062
  2. FENTANYL TRANSDERMAL SYSTEM [Suspect]
     Indication: PAIN IN EXTREMITY
     Route: 062
  3. FENTANYL TRANSDERMAL SYSTEM [Suspect]
     Indication: ABDOMINAL PAIN UPPER
     Route: 062
  4. HYDROCODONE BITARTRATE [Concomitant]
     Indication: PAIN
     Dosage: 10/325
     Route: 048
  5. NORVASC [Concomitant]
     Indication: BLOOD PRESSURE
     Route: 048
  6. ESTROGENS CONJUGATED [Concomitant]
     Indication: HORMONE REPLACEMENT THERAPY
     Dosage: 0.02
     Route: 048
  7. KLONOPIN [Concomitant]
     Indication: NEUROPATHY PERIPHERAL
     Route: 048
  8. TRAZODONE HCL [Concomitant]
     Indication: SLEEP DISORDER
     Route: 048
  9. TRAZODONE HCL [Concomitant]
     Indication: DEPRESSION
     Dosage: 100 MG 3 TABLETS
     Route: 048

REACTIONS (3)
  - AMNESIA [None]
  - NIGHT SWEATS [None]
  - TREATMENT NONCOMPLIANCE [None]
